FAERS Safety Report 25182816 (Version 1)
Quarter: 2025Q2

REPORT INFORMATION
  Report Type: Spontaneous
  Country: DE (occurrence: DE)
  Receive Date: 20250410
  Receipt Date: 20250410
  Transmission Date: 20250716
  Serious: Yes (Life-Threatening, Other)
  Sender: ACCORD
  Company Number: None

PATIENT
  Age: 35 Year
  Sex: Male
  Weight: 66 kg

DRUGS (3)
  1. SERTRALINE [Suspect]
     Active Substance: SERTRALINE HYDROCHLORIDE
     Indication: Stress management
     Dosage: 50 MG
     Dates: start: 20240515, end: 20240526
  2. SERTRALINE [Suspect]
     Active Substance: SERTRALINE HYDROCHLORIDE
     Indication: Stress management
     Dates: start: 20240527, end: 20240528
  3. SERTRALINE [Suspect]
     Active Substance: SERTRALINE HYDROCHLORIDE
     Indication: Stress management
     Dosage: 1/4 TABLET
     Dates: start: 20240529, end: 20240531

REACTIONS (30)
  - Genital hypoaesthesia [Not Recovered/Not Resolved]
  - Erectile dysfunction [Not Recovered/Not Resolved]
  - Loss of libido [Not Recovered/Not Resolved]
  - Hypoaesthesia [Not Recovered/Not Resolved]
  - Penile size reduced [Not Recovered/Not Resolved]
  - Suicidal ideation [Recovered/Resolved with Sequelae]
  - Penile pain [Not Recovered/Not Resolved]
  - Penile vascular disorder [Not Recovered/Not Resolved]
  - Euphoric mood [Unknown]
  - Nausea [Unknown]
  - Dry mouth [Unknown]
  - Fatigue [Unknown]
  - Pelvic pain [Not Recovered/Not Resolved]
  - Testicular pain [Recovered/Resolved with Sequelae]
  - Dyspepsia [Unknown]
  - Sexual dysfunction [Not Recovered/Not Resolved]
  - Impaired quality of life [Unknown]
  - Depression [Unknown]
  - Semen analysis abnormal [Not Recovered/Not Resolved]
  - Organic erectile dysfunction [Not Recovered/Not Resolved]
  - Loss of dreaming [Not Recovered/Not Resolved]
  - Muscle twitching [Not Recovered/Not Resolved]
  - Hypohidrosis [Unknown]
  - Pulse abnormal [Not Recovered/Not Resolved]
  - Circadian rhythm sleep disorder [Not Recovered/Not Resolved]
  - Memory impairment [Not Recovered/Not Resolved]
  - Sleep disorder [Not Recovered/Not Resolved]
  - Retching [Not Recovered/Not Resolved]
  - Hyperhidrosis [Not Recovered/Not Resolved]
  - Hot flush [Not Recovered/Not Resolved]

NARRATIVE: CASE EVENT DATE: 20240515
